FAERS Safety Report 13439600 (Version 5)
Quarter: 2017Q3

REPORT INFORMATION
  Report Type: Spontaneous
  Country: JP (occurrence: JP)
  Receive Date: 20170413
  Receipt Date: 20170719
  Transmission Date: 20171127
  Serious: Yes (Other)
  Sender: FDA-Public Use
  Company Number: PHJP2017JP010616

PATIENT
  Age: 60 Year
  Sex: Male
  Weight: 74.95 kg

DRUGS (11)
  1. AMLODIPINE [Concomitant]
     Active Substance: AMLODIPINE BESYLATE
     Indication: HYPERTENSION
     Dosage: 2.5 MG, QD
     Route: 048
  2. NEORAL [Suspect]
     Active Substance: CYCLOSPORINE
     Dosage: 175 MG, QD
     Route: 048
     Dates: start: 20170406, end: 20170412
  3. LYRICA [Concomitant]
     Active Substance: PREGABALIN
     Indication: SCIATICA
     Dosage: 75 MG, BID
     Route: 048
     Dates: start: 20170222
  4. NEORAL [Suspect]
     Active Substance: CYCLOSPORINE
     Dosage: 125 MG, QD
     Route: 048
     Dates: start: 20170413, end: 20170416
  5. NEORAL [Suspect]
     Active Substance: CYCLOSPORINE
     Dosage: 150 MG, QD
     Route: 048
     Dates: start: 20170417
  6. PLAVIX [Concomitant]
     Active Substance: CLOPIDOGREL BISULFATE
     Indication: MYOCARDIAL INFARCTION
     Dosage: 75 MG, QD
     Route: 048
  7. XOLAIR [Suspect]
     Active Substance: OMALIZUMAB
     Indication: URTICARIA CHRONIC
     Dosage: 300 MG, QD
     Route: 058
     Dates: start: 20170329
  8. NEORAL [Suspect]
     Active Substance: CYCLOSPORINE
     Indication: URTICARIA CHRONIC
     Dosage: 225 MG, QD
     Route: 048
     Dates: start: 20170324, end: 20170405
  9. OLOPATADINE. [Concomitant]
     Active Substance: OLOPATADINE
     Indication: URTICARIA CHRONIC
     Dosage: 5 MG, BID
     Route: 048
     Dates: start: 20161109
  10. TALION [Concomitant]
     Active Substance: BEPOTASTINE
     Indication: URTICARIA CHRONIC
     Dosage: 10 MG, BID
     Route: 048
     Dates: start: 20161012
  11. BROTIZOLAM [Concomitant]
     Active Substance: BROTIZOLAM
     Indication: INSOMNIA
     Dosage: 0.5 MG, QD
     Route: 048
     Dates: start: 20170310

REACTIONS (9)
  - Mobility decreased [Recovering/Resolving]
  - Therapeutic response unexpected [Unknown]
  - Product use in unapproved indication [Unknown]
  - Dry skin [Recovering/Resolving]
  - Gingival bleeding [Recovered/Resolved]
  - Pruritus [Unknown]
  - Pre-existing condition improved [Unknown]
  - Malaise [Recovering/Resolving]
  - Hypoaesthesia oral [Recovered/Resolved]

NARRATIVE: CASE EVENT DATE: 20170329
